FAERS Safety Report 4600848-4 (Version None)
Quarter: 2005Q1

REPORT INFORMATION
  Report Type: 
  Country: None (occurrence: None)
  Receive Date: 20050127
  Receipt Date: 20041101
  Transmission Date: 20050727
  Serious: No
  Sender: FDA-Public Use
  Company Number: USA041182820

PATIENT
  Age: 3 Year
  Sex: Male

DRUGS (3)
  1. STRATTERA [Suspect]
     Indication: ATTENTION DEFICIT/HYPERACTIVITY DISORDER
     Dosage: 18 MG DAY
     Dates: start: 20041101
  2. ZITHROMAX [Concomitant]
  3. COUGH SYRUP [Concomitant]

REACTIONS (3)
  - CHOKING [None]
  - RETCHING [None]
  - VOMITING [None]
